FAERS Safety Report 12682415 (Version 6)
Quarter: 2016Q4

REPORT INFORMATION
  Report Type: Spontaneous
  Country: US (occurrence: US)
  Receive Date: 20160825
  Receipt Date: 20161007
  Transmission Date: 20170207
  Serious: No
  Sender: FDA-Public Use
  Company Number: PHEH2016US021215

PATIENT
  Sex: Female
  Weight: 106.58 kg

DRUGS (10)
  1. ZYRTEC [Concomitant]
     Active Substance: CETIRIZINE HYDROCHLORIDE
     Indication: HYPERSENSITIVITY
     Dosage: 20 MG, UNK, HS
     Route: 048
  2. MINIVELLE [Suspect]
     Active Substance: ESTRADIOL
     Indication: HORMONE REPLACEMENT THERAPY
     Route: 062
  3. RANITIDINE. [Concomitant]
     Active Substance: RANITIDINE
     Indication: PRODUCT USED FOR UNKNOWN INDICATION
     Dosage: 150 MG, UNK (2 HS)
     Route: 048
  4. ESTRADIOL. [Suspect]
     Active Substance: ESTRADIOL
     Indication: HORMONE REPLACEMENT THERAPY
     Dosage: (SUN + WED FOR 3 DAYS TRANSDERM)
     Route: 062
  5. VERAPAMIL [Concomitant]
     Active Substance: VERAPAMIL HYDROCHLORIDE
     Indication: PRODUCT USED FOR UNKNOWN INDICATION
     Dosage: 100 MG, QD
     Route: 048
  6. TIZANIDINE. [Concomitant]
     Active Substance: TIZANIDINE
     Indication: RESTLESS LEGS SYNDROME
     Dosage: 4 MG, BID
     Route: 048
  7. OXYBUTYNIN [Concomitant]
     Active Substance: OXYBUTYNIN
     Indication: PARALYSIS
  8. ESTRADIOL. [Suspect]
     Active Substance: ESTRADIOL
     Dosage: UNK
     Route: 062
  9. OXYBUTYNIN [Concomitant]
     Active Substance: OXYBUTYNIN
     Indication: INCONTINENCE
     Dosage: 5 MG, BID
     Route: 048
  10. CYMBALTA [Concomitant]
     Active Substance: DULOXETINE HYDROCHLORIDE
     Indication: MUSCLE SPASMS
     Dosage: 20 MG, QD
     Route: 048

REACTIONS (26)
  - Cardiac flutter [Unknown]
  - Anaemia [Unknown]
  - Arthralgia [Unknown]
  - Erythema [Not Recovered/Not Resolved]
  - Fall [Unknown]
  - Heart rate increased [Unknown]
  - Cardiac disorder [Unknown]
  - Pruritus [Not Recovered/Not Resolved]
  - Productive cough [Unknown]
  - Headache [Unknown]
  - Abdominal discomfort [Unknown]
  - Rash [Unknown]
  - Nasal congestion [Unknown]
  - Feeling abnormal [Unknown]
  - Peripheral swelling [Unknown]
  - Product adhesion issue [Unknown]
  - Product quality issue [Unknown]
  - Muscle mass [Unknown]
  - Hot flush [Unknown]
  - Decreased appetite [Unknown]
  - Chest discomfort [Unknown]
  - Vomiting [Unknown]
  - Rhinorrhoea [Unknown]
  - Extrasystoles [Unknown]
  - Insomnia [Unknown]
  - Dizziness [Unknown]
